FAERS Safety Report 19374700 (Version 2)
Quarter: 2021Q2

REPORT INFORMATION
  Report Type: Spontaneous
  Country: NL (occurrence: NL)
  Receive Date: 20210604
  Receipt Date: 20210611
  Transmission Date: 20210717
  Serious: Yes (Other)
  Sender: FDA-Public Use
  Company Number: NL-TEVA-2021-NL-1918098

PATIENT
  Age: 56 Year
  Sex: Female
  Weight: 62 kg

DRUGS (2)
  1. BUPROPION TABLET MGA 300MG / WELLBUTRIN XR TABLET MGA 300MG [Concomitant]
     Dosage: 300 MILLIGRAM DAILY; THERAPY START DATE :THERAPY END DATE:ASKU
  2. MORFINE TABLET MGA  10MG (SULFAAT) / BRAND NAME NOT SPECIFIED [Suspect]
     Active Substance: MORPHINE SULFATE
     Indication: PAIN
     Dosage: 1 DOSAGE FORMS DAILY; THERAPY END DATE: ASKU
     Route: 065
     Dates: start: 202101

REACTIONS (1)
  - Angina pectoris [Recovered/Resolved]

NARRATIVE: CASE EVENT DATE: 20210112
